FAERS Safety Report 12890876 (Version 2)
Quarter: 2016Q4

REPORT INFORMATION
  Report Type: Spontaneous
  Country: US (occurrence: US)
  Receive Date: 20161027
  Receipt Date: 20161221
  Transmission Date: 20170207
  Serious: No
  Sender: FDA-Public Use
  Company Number: US-009507513-1610USA013091

PATIENT
  Age: 62 Year
  Sex: Male
  Weight: 73.47 kg

DRUGS (8)
  1. VALSARTAN. [Concomitant]
     Active Substance: VALSARTAN
     Dosage: UNK
  2. GAVILYTE N [Concomitant]
     Dosage: UNK
  3. CALCIUM ACETATE. [Concomitant]
     Active Substance: CALCIUM ACETATE
     Dosage: UNK
  4. OMEPRAZOLE. [Concomitant]
     Active Substance: OMEPRAZOLE
     Dosage: UNK
  5. LOTREL [Concomitant]
     Active Substance: AMLODIPINE BESYLATE\BENAZEPRIL HYDROCHLORIDE
     Dosage: UNK
  6. LOTREL [Concomitant]
     Active Substance: AMLODIPINE BESYLATE\BENAZEPRIL HYDROCHLORIDE
     Dosage: UNK
  7. ROPINIROLE. [Concomitant]
     Active Substance: ROPINIROLE
     Dosage: UNK
  8. ZEPATIER [Suspect]
     Active Substance: ELBASVIR\GRAZOPREVIR
     Indication: HEPATITIS C
     Dosage: 1 TABLET DAILY FOR 12 WEEKS
     Route: 048
     Dates: start: 201607, end: 201611

REACTIONS (3)
  - Muscular weakness [Not Recovered/Not Resolved]
  - Poor quality sleep [Not Recovered/Not Resolved]
  - Fatigue [Not Recovered/Not Resolved]

NARRATIVE: CASE EVENT DATE: 201607
